FAERS Safety Report 12454826 (Version 2)
Quarter: 2016Q3

REPORT INFORMATION
  Report Type: Spontaneous
  Country: US (occurrence: US)
  Receive Date: 20160610
  Receipt Date: 20160701
  Transmission Date: 20161109
  Serious: Yes (Other)
  Sender: FDA-Public Use
  Company Number: US-AUROBINDO-AUR-APL-2016-07396

PATIENT
  Age: 62 Year
  Sex: Male

DRUGS (1)
  1. VORICONAZOLE. [Suspect]
     Active Substance: VORICONAZOLE
     Indication: GRAFT INFECTION
     Route: 048

REACTIONS (2)
  - Bone pain [Recovered/Resolved]
  - Periostitis [Recovered/Resolved]
